FAERS Safety Report 8218246-3 (Version None)
Quarter: 2012Q1

REPORT INFORMATION
  Report Type: 
  Country: None (occurrence: None)
  Receive Date: 20120319
  Receipt Date: 20120307
  Transmission Date: 20120608
  Serious: Yes (Other)
  Sender: FDA-Public Use
  Company Number: US-CELGENEUS-163-20785-12023089

PATIENT
  Sex: Male

DRUGS (1)
  1. THALOMID [Suspect]
     Dosage: 25 MILLIGRAM
     Route: 048
     Dates: start: 20120131

REACTIONS (3)
  - INSOMNIA [None]
  - ASTHENIA [None]
  - DRUG INTOLERANCE [None]
